FAERS Safety Report 5895704-8 (Version None)
Quarter: 2008Q3

REPORT INFORMATION
  Report Type: 
  Country: None (occurrence: None)
  Receive Date: 20080828
  Receipt Date: 20071212
  Transmission Date: 20090109
  Serious: Yes (Hospitalization)
  Sender: FDA-Public Use
  Company Number: 165265USA

PATIENT
  Sex: Female

DRUGS (2)
  1. LISINOPRIL [Suspect]
  2. METOPROLOL TARTRATE [Suspect]

REACTIONS (3)
  - DRUG INEFFECTIVE [None]
  - OEDEMA PERIPHERAL [None]
  - THROAT TIGHTNESS [None]
